FAERS Safety Report 13377220 (Version 1)
Quarter: 2017Q1

REPORT INFORMATION
  Report Type: Spontaneous
  Country: US (occurrence: US)
  Receive Date: 20170328
  Receipt Date: 20170328
  Transmission Date: 20170429
  Serious: No
  Sender: FDA-Public Use
  Company Number: US-PERRIGO-17US000795

PATIENT
  Age: 65 Year
  Sex: Male
  Weight: 103.4 kg

DRUGS (3)
  1. TRIAMCINOLONE [Concomitant]
     Active Substance: TRIAMCINOLONE
     Indication: FUNGAL SKIN INFECTION
     Dosage: ONE APPLICATIOPN, BID, PRN
     Route: 061
     Dates: start: 201608
  2. TRIAMCINOLONE [Concomitant]
     Active Substance: TRIAMCINOLONE
     Indication: PSORIASIS
  3. NYSTATIN. [Suspect]
     Active Substance: NYSTATIN
     Indication: FUNGAL SKIN INFECTION
     Dosage: ONE APPLICATION, BID, PRN
     Route: 061
     Dates: start: 201608

REACTIONS (2)
  - Drug ineffective [Unknown]
  - Wrong technique in product usage process [Not Recovered/Not Resolved]

NARRATIVE: CASE EVENT DATE: 201608
